FAERS Safety Report 17811943 (Version 2)
Quarter: 2020Q2

REPORT INFORMATION
  Report Type: Report from Study
  Country: US (occurrence: US)
  Receive Date: 20200521
  Receipt Date: 20200525
  Transmission Date: 20200714
  Serious: Yes (Death, Life-Threatening, Hospitalization)
  Sender: FDA-Public Use
  Company Number: US-SA-2020SA102646

PATIENT
  Age: 46 Year
  Sex: Male

DRUGS (13)
  1. ZOFRAN [Concomitant]
     Active Substance: ONDANSETRON HYDROCHLORIDE
     Indication: NAUSEA
     Dosage: 4 MG, PRN (AS NECESSARY)
     Route: 042
     Dates: start: 20200331
  2. ZOFRAN [Concomitant]
     Active Substance: ONDANSETRON HYDROCHLORIDE
     Indication: VOMITING
  3. PEPCID [ALUMINIUM HYDROXIDE GEL, DRIED;MAGNESIUM CARBONATE] [Concomitant]
     Active Substance: ALUMINUM HYDROXIDE\MAGNESIUM CARBONATE
     Indication: PROPHYLAXIS
     Dosage: 20 MG, BID
     Route: 042
     Dates: start: 20200404, end: 20200404
  4. THORAZINE [Concomitant]
     Active Substance: CHLORPROMAZINE
     Indication: PRODUCT USED FOR UNKNOWN INDICATION
     Dosage: 10 MG,1X ONCE
     Route: 048
     Dates: start: 20200401, end: 20200401
  5. PLAQUENIL [HYDROXYCHLOROQUINE PHOSPHATE] [Concomitant]
     Active Substance: HYDROXYCHLOROQUINE DIPHOSPHATE
     Indication: COVID-19
     Dosage: 400 MG BID
     Route: 048
     Dates: start: 20200331, end: 20200403
  6. NORVASC [Concomitant]
     Active Substance: AMLODIPINE BESYLATE
     Indication: HYPERTENSION
     Dosage: 5 MG, QD
     Route: 048
     Dates: start: 20200402, end: 20200404
  7. SARILUMAB [Suspect]
     Active Substance: SARILUMAB
     Indication: COVID-19
     Dosage: REGN MAB1 200 MG, 1X
     Route: 042
     Dates: start: 20200403, end: 20200403
  8. TYLENOL [Concomitant]
     Active Substance: ACETAMINOPHEN
     Indication: PRODUCT USED FOR UNKNOWN INDICATION
     Dosage: 650 MG, AS NECESSARY
     Route: 048
     Dates: start: 20200331
  9. COMPAZINE [PROCHLORPERAZINE EDISYLATE] [Concomitant]
     Active Substance: PROCHLORPERAZINE EDISYLATE
     Indication: NAUSEA
     Dosage: 10 MG, PRN AS NECESSARY
     Route: 042
     Dates: start: 20200402
  10. COMPAZINE [PROCHLORPERAZINE EDISYLATE] [Concomitant]
     Active Substance: PROCHLORPERAZINE EDISYLATE
     Indication: VOMITING
  11. PLAQUENIL [HYDROXYCHLOROQUINE PHOSPHATE] [Concomitant]
     Active Substance: HYDROXYCHLOROQUINE DIPHOSPHATE
     Dosage: 400 MG, BID
     Route: 048
     Dates: start: 20200402, end: 20200407
  12. PLAQUENIL [HYDROXYCHLOROQUINE PHOSPHATE] [Concomitant]
     Active Substance: HYDROXYCHLOROQUINE DIPHOSPHATE
     Dosage: 200 MG BID
     Route: 048
     Dates: start: 20200403, end: 20200404
  13. BENZONATATE. [Concomitant]
     Active Substance: BENZONATATE
     Indication: COUGH
     Dosage: 100 MG, TID
     Route: 048
     Dates: start: 20200403, end: 20200404

REACTIONS (4)
  - Bacteraemia [Not Recovered/Not Resolved]
  - COVID-19 [Fatal]
  - Pneumothorax [Unknown]
  - Thrombocytopenia [Recovered/Resolved]

NARRATIVE: CASE EVENT DATE: 20200402
